FAERS Safety Report 19327498 (Version 1)
Quarter: 2021Q2

REPORT INFORMATION
  Report Type: Report from Study
  Country: US (occurrence: US)
  Receive Date: 20210528
  Receipt Date: 20210528
  Transmission Date: 20210717
  Serious: Yes (Hospitalization)
  Sender: FDA-Public Use
  Company Number: US-ROCHE-2658876

PATIENT
  Age: 80 Year
  Sex: Male
  Weight: 88.5 kg

DRUGS (12)
  1. POLYETHYLENE GLYCOL [Concomitant]
     Active Substance: POLYETHYLENE GLYCOLS
  2. CRESTOR [Concomitant]
     Active Substance: ROSUVASTATIN CALCIUM
  3. SENOKOT [Concomitant]
     Active Substance: SENNOSIDES
  4. ALBUTEROL. [Concomitant]
     Active Substance: ALBUTEROL
  5. TESSALON [Concomitant]
     Active Substance: BENZONATATE
  6. PRILOSEC [Concomitant]
     Active Substance: OMEPRAZOLE MAGNESIUM
  7. PROSCAR [Concomitant]
     Active Substance: FINASTERIDE
  8. TYLENOL [Concomitant]
     Active Substance: ACETAMINOPHEN
  9. ATROVENT [Concomitant]
     Active Substance: IPRATROPIUM BROMIDE
  10. TOCILIZUMAB. [Suspect]
     Active Substance: TOCILIZUMAB
     Indication: COVID-19
     Dosage: 8 MG/KG X 1, (708 MG)
     Route: 042
     Dates: start: 20200501, end: 20200501
  11. LOVENOX [Concomitant]
     Active Substance: ENOXAPARIN SODIUM
  12. DELTASONE [Concomitant]
     Active Substance: PREDNISONE

REACTIONS (1)
  - Infection [Recovered/Resolved]

NARRATIVE: CASE EVENT DATE: 20200515
